FAERS Safety Report 18570556 (Version 1)
Quarter: 2020Q4

REPORT INFORMATION
  Report Type: Spontaneous
  Country: US (occurrence: US)
  Receive Date: 20201202
  Receipt Date: 20201202
  Transmission Date: 20210114
  Serious: Yes (Other)
  Sender: FDA-Public Use
  Company Number: None

PATIENT
  Age: 38 Year
  Sex: Male
  Weight: 137.3 kg

DRUGS (7)
  1. LINAGLIPTIN-METFORMIN 2.5MG/1000MG - 2 TABS DAILY [Concomitant]
  2. ATORVASTATIN 40MG DAILY [Concomitant]
  3. GABAPENTIN 600MG BID [Concomitant]
  4. BAMLANIVIMAB. [Suspect]
     Active Substance: BAMLANIVIMAB
     Indication: COVID-19
     Dosage: ?          OTHER FREQUENCY:ONCE;?
     Route: 042
  5. ASPIRIN 81MG DAILY [Concomitant]
     Active Substance: ASPIRIN
  6. ERGOCALCIFEROL 50,000 UNITS MONDAY AND THURSDAY [Concomitant]
  7. LISINOPRIL 20MG DAILY [Concomitant]

REACTIONS (6)
  - Diarrhoea [None]
  - Blood pressure decreased [None]
  - Refusal of treatment by patient [None]
  - Infusion related reaction [None]
  - Hyperhidrosis [None]
  - Abdominal discomfort [None]

NARRATIVE: CASE EVENT DATE: 20201201
